FAERS Safety Report 9950751 (Version 1)
Quarter: 2014Q1

REPORT INFORMATION
  Report Type: Report from Study
  Country: US (occurrence: US)
  Receive Date: 20140304
  Receipt Date: 20140304
  Transmission Date: 20141002
  Serious: No
  Sender: FDA-Public Use
  Company Number: US-ABBVIE-13P-163-1065751-00

PATIENT
  Age: 16 Year
  Sex: Female
  Weight: 61.29 kg

DRUGS (4)
  1. HUMIRA [Suspect]
     Indication: JUVENILE IDIOPATHIC ARTHRITIS
     Dates: start: 2011
  2. METHOTREXATE DUP [Concomitant]
     Indication: JUVENILE IDIOPATHIC ARTHRITIS
  3. FOLIC ACID [Concomitant]
     Indication: VITAMIN SUPPLEMENTATION
  4. VITAMIN B [Concomitant]
     Indication: VITAMIN SUPPLEMENTATION

REACTIONS (2)
  - Oral infection [Recovered/Resolved]
  - Mycoplasma infection [Recovered/Resolved]
